FAERS Safety Report 13093634 (Version 1)
Quarter: 2017Q1

REPORT INFORMATION
  Report Type: Spontaneous
  Country: US (occurrence: US)
  Receive Date: 20170106
  Receipt Date: 20170106
  Transmission Date: 20170428
  Serious: No
  Sender: FDA-Public Use
  Company Number: US-TARO-2016TAR00111

PATIENT
  Sex: Male

DRUGS (1)
  1. TRIAMCINOLONE ACETONIDE CREAM 0.1% [Suspect]
     Active Substance: TRIAMCINOLONE ACETONIDE
     Indication: RASH PRURITIC

REACTIONS (1)
  - Drug ineffective [Not Recovered/Not Resolved]
